FAERS Safety Report 23818458 (Version 1)
Quarter: 2024Q2

REPORT INFORMATION
  Report Type: Spontaneous
  Country: TH (occurrence: None)
  Receive Date: 20240506
  Receipt Date: 20240506
  Transmission Date: 20240716
  Serious: Yes (Other)
  Sender: FDA-Public Use
  Company Number: TH-ROCHE-3552315

PATIENT

DRUGS (1)
  1. ALECTINIB [Suspect]
     Active Substance: ALECTINIB
     Indication: Product used for unknown indication
     Dosage: DOSE OF 450 MG/DAY, WHICH WAS REDUCED FROM 600 MG TWICE DAILY (BID)
     Route: 048
     Dates: start: 20220901

REACTIONS (1)
  - Metastases to central nervous system [Unknown]
